FAERS Safety Report 16700113 (Version 2)
Quarter: 2019Q3

REPORT INFORMATION
  Report Type: Spontaneous
  Country: TR (occurrence: TR)
  Receive Date: 20190813
  Receipt Date: 20190813
  Transmission Date: 20191004
  Serious: Yes (Other)
  Sender: FDA-Public Use
  Company Number: PHHY2019TR184008

PATIENT
  Age: 26 Year
  Sex: Male

DRUGS (1)
  1. CICLOSPORIN [Suspect]
     Active Substance: CYCLOSPORINE
     Indication: URTICARIAL VASCULITIS
     Dosage: 100 MG, BID
     Route: 065

REACTIONS (4)
  - Condition aggravated [Recovered/Resolved]
  - Urticarial vasculitis [Recovered/Resolved]
  - Product use in unapproved indication [Unknown]
  - Skin lesion [Recovered/Resolved]
